FAERS Safety Report 8505037-9 (Version None)
Quarter: 2012Q3

REPORT INFORMATION
  Report Type: 
  Country: None (occurrence: None)
  Receive Date: 20120702
  Receipt Date: 20120614
  Transmission Date: 20120928
  Serious: Yes (Hospitalization, Other)
  Sender: FDA-Public Use
  Company Number: JPI-P-021022

PATIENT
  Age: 34 Year
  Sex: Female
  Weight: 106.1417 kg

DRUGS (18)
  1. XYREM [Suspect]
     Indication: SOMNOLENCE
     Dosage: 6 GM (3 GM, 2 IN 1 D), ORAL: 7.5 GM (3.75 GM,2 IN 1 D), ORAL
     Route: 048
     Dates: start: 20111111
  2. XYREM [Suspect]
     Indication: CATAPLEXY
     Dosage: 6 GM (3 GM, 2 IN 1 D), ORAL: 7.5 GM (3.75 GM,2 IN 1 D), ORAL
     Route: 048
     Dates: start: 20111111
  3. XYREM [Suspect]
     Indication: SOMNOLENCE
     Dosage: 6 GM (3 GM, 2 IN 1 D), ORAL: 7.5 GM (3.75 GM,2 IN 1 D), ORAL
     Route: 048
     Dates: start: 20120214
  4. XYREM [Suspect]
     Indication: CATAPLEXY
     Dosage: 6 GM (3 GM, 2 IN 1 D), ORAL: 7.5 GM (3.75 GM,2 IN 1 D), ORAL
     Route: 048
     Dates: start: 20120214
  5. LACOSAMIDE [Concomitant]
  6. METOPROLOL SUCCINATE [Concomitant]
  7. MORPHINE [Concomitant]
  8. HYDROXYZINE [Concomitant]
  9. DICLOFENAC SODIUM [Concomitant]
  10. HYDROCORTISONE [Concomitant]
  11. BACLOFEN [Concomitant]
  12. AMLODIPINE [Concomitant]
  13. DEXMETHYLPHENIDATE HYDROCHLORIDE [Concomitant]
  14. PRASTERONE [Concomitant]
  15. SCOPOLAMINE [Concomitant]
  16. CLONIDINE [Concomitant]
  17. HYDROXYCHLOROQUINE SULFATE [Concomitant]
  18. LIDOCAINE [Concomitant]

REACTIONS (13)
  - INSOMNIA [None]
  - VIRAL INFECTION [None]
  - CONVULSION [None]
  - AMMONIA INCREASED [None]
  - ASTHENIA [None]
  - CONTUSION [None]
  - FACE INJURY [None]
  - FALL [None]
  - DEHYDRATION [None]
  - CATAPLEXY [None]
  - LOSS OF CONTROL OF LEGS [None]
  - GAIT DISTURBANCE [None]
  - SOMNAMBULISM [None]
